FAERS Safety Report 4848760-X (Version None)
Quarter: 2005Q4

REPORT INFORMATION
  Report Type: 
  Country: None (occurrence: None)
  Receive Date: 20051206
  Receipt Date: 20051123
  Transmission Date: 20060501
  Serious: Yes (Hospitalization)
  Sender: FDA-Public Use
  Company Number: FR200511002435

PATIENT
  Age: 75 Year
  Sex: Female
  Weight: 40 kg

DRUGS (4)
  1. GEMZAR [Suspect]
     Indication: BREAST CANCER
     Dosage: 4080 MG, OTHER, INTRAVENOUS
     Route: 042
     Dates: start: 20050216, end: 20050406
  2. TRIATEC /FRA/ (RAMIPRIL) [Concomitant]
  3. EPREX [Concomitant]
  4. BISOPROLOL FUMARATE [Concomitant]

REACTIONS (3)
  - CARDIAC FAILURE [None]
  - CONDITION AGGRAVATED [None]
  - PLEURAL EFFUSION [None]
